FAERS Safety Report 10897357 (Version 20)
Quarter: 2021Q2

REPORT INFORMATION
  Report Type: Spontaneous
  Country: US (occurrence: US)
  Receive Date: 20150309
  Receipt Date: 20210407
  Transmission Date: 20210716
  Serious: Yes (Hospitalization, Other)
  Sender: FDA-Public Use
  Company Number: US-PFIZER INC-2015082622

PATIENT
  Age: 69 Year
  Sex: Female
  Weight: 75 kg

DRUGS (10)
  1. PLAQUENIL [Concomitant]
     Active Substance: HYDROXYCHLOROQUINE SULFATE
     Indication: SYSTEMIC LUPUS ERYTHEMATOSUS
     Dosage: 400 MG, 1X/DAY (AT BEDTIME)
  2. ALEVE [Concomitant]
     Active Substance: NAPROXEN SODIUM
     Indication: PAIN
     Dosage: UNK
  3. EFFEXOR XR [Suspect]
     Active Substance: VENLAFAXINE HYDROCHLORIDE
     Indication: ANXIETY DISORDER
     Dosage: 75 MG, 2X/DAY (IN THE MORNING AND AT NIGHT)
     Route: 048
     Dates: start: 2010
  4. ZOLOFT [Concomitant]
     Active Substance: SERTRALINE HYDROCHLORIDE
     Indication: PAIN
  5. LYRICA [Concomitant]
     Active Substance: PREGABALIN
     Indication: BURNING SENSATION
     Dosage: UNK
  6. EFFEXOR XR [Suspect]
     Active Substance: VENLAFAXINE HYDROCHLORIDE
     Indication: PAIN
     Dosage: 75 MG, 1X/DAY
     Route: 048
  7. EFFEXOR XR [Suspect]
     Active Substance: VENLAFAXINE HYDROCHLORIDE
     Dosage: 75 MG, 2X/DAY (IN THE MORNING AND AT NIGHT)
     Route: 048
  8. NEXIUM [Concomitant]
     Active Substance: ESOMEPRAZOLE MAGNESIUM
     Dosage: UNK
  9. ZOLOFT [Concomitant]
     Active Substance: SERTRALINE HYDROCHLORIDE
     Indication: ANXIETY
     Dosage: UNK
  10. EFFEXOR XR [Suspect]
     Active Substance: VENLAFAXINE HYDROCHLORIDE
     Dosage: 75 MG, 2X/DAY

REACTIONS (28)
  - Rheumatoid arthritis [Unknown]
  - Intentional product use issue [Unknown]
  - Illness [Unknown]
  - Gastrooesophageal reflux disease [Unknown]
  - Insomnia [Unknown]
  - White blood cell count decreased [Recovered/Resolved]
  - Fatigue [Not Recovered/Not Resolved]
  - Herpes zoster [Unknown]
  - Lymphadenopathy [Unknown]
  - Drug ineffective [Unknown]
  - Oral pain [Unknown]
  - Pain [Not Recovered/Not Resolved]
  - Tongue injury [Unknown]
  - Eructation [Unknown]
  - Dysphemia [Unknown]
  - Haemoglobin decreased [Unknown]
  - Loss of personal independence in daily activities [Unknown]
  - Glossodynia [Unknown]
  - Systemic lupus erythematosus [Unknown]
  - Breast cancer stage III [Unknown]
  - Product use issue [Unknown]
  - Thyroid function test abnormal [Unknown]
  - Headache [Unknown]
  - Drug dependence [Unknown]
  - Upper limb fracture [Unknown]
  - Fall [Unknown]
  - Off label use [Unknown]
  - Gait inability [Unknown]

NARRATIVE: CASE EVENT DATE: 2010
